FAERS Safety Report 16983902 (Version 4)
Quarter: 2021Q1

REPORT INFORMATION
  Report Type: Report from Study
  Country: US (occurrence: US)
  Receive Date: 20191101
  Receipt Date: 20210108
  Transmission Date: 20210419
  Serious: Yes (Hospitalization, Other)
  Sender: FDA-Public Use
  Company Number: US-TAKEDA-2019TUS061486

PATIENT
  Sex: Female

DRUGS (1)
  1. VEDOLIZUMAB [Suspect]
     Active Substance: VEDOLIZUMAB
     Indication: COLITIS ULCERATIVE
     Dosage: 300 MILLIGRAM
     Route: 042
     Dates: start: 2019

REACTIONS (6)
  - Blood pressure decreased [Unknown]
  - Jaw operation [Recovered/Resolved]
  - Upper limb fracture [Unknown]
  - Blood iron decreased [Unknown]
  - Colitis ulcerative [Unknown]
  - Diarrhoea [Recovered/Resolved]
